FAERS Safety Report 8142618-9 (Version None)
Quarter: 2012Q1

REPORT INFORMATION
  Report Type: 
  Country: None (occurrence: None)
  Receive Date: 20120216
  Receipt Date: 20120215
  Transmission Date: 20120608
  Serious: Yes (Other)
  Sender: FDA-Public Use
  Company Number: CA-ABBOTT-11P-028-0857352-00

PATIENT
  Sex: Female
  Weight: 115 kg

DRUGS (1)
  1. HUMIRA [Suspect]
     Indication: PSORIASIS
     Route: 058
     Dates: start: 20110728, end: 20110816

REACTIONS (2)
  - HAEMORRHAGE [None]
  - ABORTION SPONTANEOUS [None]
